FAERS Safety Report 7377801-3 (Version None)
Quarter: 2011Q1

REPORT INFORMATION
  Report Type: 
  Country: None (occurrence: None)
  Receive Date: 20110328
  Receipt Date: 20110322
  Transmission Date: 20110831
  Serious: Yes (Death, Life-Threatening, Hospitalization)
  Sender: FDA-Public Use
  Company Number: JP-JNJFOC-20100108329

PATIENT
  Sex: Female
  Weight: 40 kg

DRUGS (6)
  1. DOXORUBICIN HCL [Suspect]
     Dosage: CYCLE 3
     Route: 042
  2. DOXORUBICIN HCL [Suspect]
     Indication: OVARIAN CANCER RECURRENT
     Dosage: CYCLE 1
     Route: 042
  3. AZUNOL [Concomitant]
     Indication: PROPHYLAXIS
     Route: 048
  4. DOXORUBICIN HCL [Suspect]
     Dosage: CYCLE 2
     Route: 042
  5. PYDOXAL [Concomitant]
     Indication: PROPHYLAXIS
     Route: 048
  6. MUCOSTA [Concomitant]
     Indication: PROPHYLAXIS
     Route: 048

REACTIONS (2)
  - INTERSTITIAL LUNG DISEASE [None]
  - OVARIAN CANCER [None]
